FAERS Safety Report 11513586 (Version 1)
Quarter: 2015Q3

REPORT INFORMATION
  Report Type: Spontaneous
  Country: US (occurrence: US)
  Receive Date: 20150903
  Receipt Date: 20150903
  Transmission Date: 20151125
  Serious: No
  Sender: FDA-Public Use
  Company Number: US-ELI_LILLY_AND_COMPANY-US201210009141

PATIENT
  Age: 32 Year
  Sex: Female

DRUGS (1)
  1. CYMBALTA [Suspect]
     Active Substance: DULOXETINE HYDROCHLORIDE
     Indication: FIBROMYALGIA
     Dosage: 30 MG, QD
     Dates: start: 201210

REACTIONS (7)
  - Drug ineffective [Unknown]
  - Paraesthesia [Unknown]
  - Pain in jaw [Unknown]
  - Renal pain [Unknown]
  - Burning sensation [Unknown]
  - Swelling [Unknown]
  - Pain in extremity [Unknown]
